FAERS Safety Report 8159735-X (Version None)
Quarter: 2012Q1

REPORT INFORMATION
  Report Type: 
  Country: None (occurrence: None)
  Receive Date: 20120223
  Receipt Date: 20120215
  Transmission Date: 20120608
  Serious: Yes (Hospitalization, Other)
  Sender: FDA-Public Use
  Company Number: US-BAYER-2012-017090

PATIENT
  Age: 23 Year
  Sex: Female

DRUGS (2)
  1. TRAMADOL HCL [Concomitant]
  2. YAZ [Suspect]
     Indication: CONTRACEPTION
     Dosage: UNK
     Route: 048
     Dates: start: 20060901

REACTIONS (14)
  - ESCHERICHIA TEST POSITIVE [None]
  - GASTROINTESTINAL OEDEMA [None]
  - SINUS TACHYCARDIA [None]
  - HAEMATOCHEZIA [None]
  - LOWER GASTROINTESTINAL HAEMORRHAGE [None]
  - BLOOD GLUCOSE INCREASED [None]
  - GASTROINTESTINAL NECROSIS [None]
  - ANAEMIA POSTOPERATIVE [None]
  - MESENTERIC VEIN THROMBOSIS [None]
  - BACK PAIN [None]
  - METABOLIC ACIDOSIS [None]
  - GASTROENTERITIS [None]
  - PAIN [None]
  - ABDOMINAL PAIN [None]
